FAERS Safety Report 18101073 (Version 2)
Quarter: 2020Q3

REPORT INFORMATION
  Report Type: Spontaneous
  Country: JP (occurrence: JP)
  Receive Date: 20200801
  Receipt Date: 20200814
  Transmission Date: 20201103
  Serious: Yes (Hospitalization, Other)
  Sender: FDA-Public Use
  Company Number: JP-SUN PHARMACEUTICAL INDUSTRIES LTD-2020RR-255890

PATIENT
  Age: 60 Year
  Sex: Male

DRUGS (4)
  1. RISPERIDAL [Suspect]
     Active Substance: RISPERIDONE
     Dosage: STARTING AT 0.5 MG/DAY, GRADUALLY INCREASING THE DOSE TO 6 MG/DAY
     Route: 065
  2. RISPERIDAL [Suspect]
     Active Substance: RISPERIDONE
     Dosage: 3 MILLIGRAM, DAILY
     Route: 065
  3. ZYPREXA [Suspect]
     Active Substance: OLANZAPINE
     Indication: SCHIZOPHRENIA
     Dosage: UNK
     Route: 065
  4. RISPERIDAL [Suspect]
     Active Substance: RISPERIDONE
     Indication: SCHIZOPHRENIA
     Dosage: 6 MILLIGRAM, DAILY
     Route: 065

REACTIONS (4)
  - Altered state of consciousness [Unknown]
  - Fatigue [Unknown]
  - Hypoglycaemic coma [Recovering/Resolving]
  - Condition aggravated [Unknown]
